FAERS Safety Report 7463667-X (Version None)
Quarter: 2011Q2

REPORT INFORMATION
  Report Type: 
  Country: None (occurrence: None)
  Receive Date: 20110506
  Receipt Date: 20110502
  Transmission Date: 20111010
  Serious: Yes (Disabling, Other)
  Sender: FDA-Public Use
  Company Number: US-MERCK-1011USA01582

PATIENT
  Age: 66 Year
  Sex: Female

DRUGS (11)
  1. FOSAMAX [Suspect]
     Indication: OSTEOPENIA
     Route: 048
     Dates: start: 19970101, end: 20080701
  2. FOSAMAX [Suspect]
     Route: 048
     Dates: start: 20080801, end: 20100101
  3. ASCORBIC ACID [Concomitant]
     Route: 065
     Dates: start: 20050101
  4. CALCIUM (UNSPECIFIED) AND VITAMIN D (UNSPECIFIED) [Concomitant]
     Route: 065
     Dates: start: 20050101
  5. FOSAMAX [Suspect]
     Indication: OSTEOPOROSIS
     Route: 048
     Dates: start: 19970101, end: 20080701
  6. HORMONES (UNSPECIFIED) [Concomitant]
     Route: 065
  7. ZINC (UNSPECIFIED) [Concomitant]
     Route: 065
     Dates: start: 20050101
  8. OMEPRAZOLE [Concomitant]
     Route: 065
     Dates: start: 20060101
  9. VITAMINS (UNSPECIFIED) [Concomitant]
     Route: 065
     Dates: start: 20050101
  10. CORTICOSTEROIDS (UNSPECIFIED) [Concomitant]
     Route: 065
     Dates: start: 20010101, end: 20060101
  11. [THERAPY UNSPECIFIED] [Concomitant]
     Indication: BLOOD CHOLESTEROL INCREASED
     Route: 065
     Dates: start: 19900101

REACTIONS (7)
  - GASTROOESOPHAGEAL REFLUX DISEASE [None]
  - STRESS FRACTURE [None]
  - OSTEOPOROSIS [None]
  - FRACTURE NONUNION [None]
  - LOW TURNOVER OSTEOPATHY [None]
  - FEMUR FRACTURE [None]
  - HYPERTENSION [None]
